FAERS Safety Report 8826891 (Version 2)
Quarter: 2012Q4

REPORT INFORMATION
  Report Type: 
  Country: None (occurrence: None)
  Receive Date: 20121008
  Receipt Date: 20121012
  Transmission Date: 20130627
  Serious: Yes (Other)
  Sender: FDA-Public Use
  Company Number: RS-009507513-1209SRB011598

PATIENT
  Age: 42 Year
  Sex: Male

DRUGS (11)
  1. CLARINASE [Suspect]
     Indication: FOOD ALLERGY
     Dosage: 2 DF, qd
     Route: 048
     Dates: start: 201207, end: 20120923
  2. CLARINASE [Suspect]
     Indication: RHINITIS ALLERGIC
     Dosage: 2 DF, qd
     Route: 048
     Dates: start: 20100826, end: 201010
  3. CLARINASE [Suspect]
     Dosage: 2 DF, qd
     Route: 048
     Dates: start: 201108, end: 201110
  4. FLIXONASE [Concomitant]
     Indication: ASTHMA
     Dosage: 100 Microgram, bid
     Route: 055
     Dates: start: 201207, end: 20120925
  5. FLIXONASE [Concomitant]
     Dosage: 100 Microgram, bid
     Route: 055
     Dates: start: 20100826, end: 201010
  6. FLIXONASE [Concomitant]
     Dosage: 100 Microgram, bid
     Route: 055
     Dates: start: 201108, end: 201110
  7. BUSCOPAN [Concomitant]
  8. OMEPROL [Concomitant]
  9. RANISAN [Concomitant]
  10. ESPUMISAN [Concomitant]
  11. ACETAMINOPHEN [Concomitant]

REACTIONS (18)
  - Pain [Recovering/Resolving]
  - Nausea [Recovering/Resolving]
  - Food aversion [Recovering/Resolving]
  - Headache [Recovering/Resolving]
  - Pain in extremity [Recovering/Resolving]
  - Arthralgia [Recovering/Resolving]
  - Hyperhidrosis [Recovering/Resolving]
  - Somnolence [Recovering/Resolving]
  - Fatigue [Recovering/Resolving]
  - Dysgeusia [Recovering/Resolving]
  - Dry mouth [Recovering/Resolving]
  - Mucosal dryness [Recovering/Resolving]
  - Micturition disorder [Recovering/Resolving]
  - Erectile dysfunction [Recovering/Resolving]
  - Feeling abnormal [Recovering/Resolving]
  - Incorrect drug administration duration [Unknown]
  - Overdose [Unknown]
  - Vertigo [Unknown]
